FAERS Safety Report 7992876-6 (Version None)
Quarter: 2011Q4

REPORT INFORMATION
  Report Type: 
  Country: None (occurrence: None)
  Receive Date: 20111219
  Receipt Date: 20110616
  Transmission Date: 20120403
  Serious: No
  Sender: FDA-Public Use
  Company Number: US-ASTRAZENECA-2011SE29324

PATIENT
  Age: 78 Year
  Sex: Female
  Weight: 58.1 kg

DRUGS (2)
  1. CRESTOR [Suspect]
     Indication: BLOOD CHOLESTEROL
     Route: 048
     Dates: start: 20110422, end: 20110428
  2. MICARDIS [Concomitant]
     Indication: HYPERTENSION

REACTIONS (5)
  - PRURITUS [None]
  - MUSCULOSKELETAL STIFFNESS [None]
  - BURNING SENSATION [None]
  - MYALGIA [None]
  - JOINT STIFFNESS [None]
